FAERS Safety Report 11444963 (Version 4)
Quarter: 2016Q3

REPORT INFORMATION
  Report Type: Report from Study
  Country: FR (occurrence: FR)
  Receive Date: 20150902
  Receipt Date: 20160712
  Transmission Date: 20161109
  Serious: Yes (Disabling, Other)
  Sender: FDA-Public Use
  Company Number: PHHY2015FR104357

PATIENT
  Age: 68 Year
  Sex: Female

DRUGS (3)
  1. AFINITOR [Suspect]
     Active Substance: EVEROLIMUS
     Indication: BREAST CANCER METASTATIC
     Dosage: 10 MG, QD
     Route: 048
     Dates: start: 20150624, end: 20150806
  2. AROMASINE [Concomitant]
     Active Substance: EXEMESTANE
     Indication: BREAST CANCER METASTATIC
     Route: 065
     Dates: start: 20150624
  3. AFINITOR [Suspect]
     Active Substance: EVEROLIMUS
     Dosage: 5 MG, QD
     Route: 048
     Dates: start: 20150807, end: 20150820

REACTIONS (8)
  - Vaginal inflammation [Not Recovered/Not Resolved]
  - Vulvar erosion [Recovered/Resolved]
  - Erythema [Not Recovered/Not Resolved]
  - Drug eruption [Recovered/Resolved]
  - Angular cheilitis [Recovered/Resolved]
  - Wound [Recovered/Resolved]
  - Oedema genital [Recovered/Resolved]
  - Mucosal inflammation [Recovered/Resolved]

NARRATIVE: CASE EVENT DATE: 20150806
